FAERS Safety Report 12373309 (Version 1)
Quarter: 2016Q2

REPORT INFORMATION
  Report Type: Spontaneous
  Country: US (occurrence: US)
  Receive Date: 20160516
  Receipt Date: 20160516
  Transmission Date: 20160815
  Serious: Yes (Hospitalization, Other)
  Sender: FDA-Public Use
  Company Number: US-CORDEN PHARMA LATINA S.P.A.-US-2016COR000141

PATIENT
  Age: 61 Year
  Sex: Female

DRUGS (7)
  1. CARBOPLATIN. [Suspect]
     Active Substance: CARBOPLATIN
     Indication: OVARIAN CANCER
     Dosage: UNK, WEEKLY
     Dates: end: 201306
  2. CARBOPLATIN. [Suspect]
     Active Substance: CARBOPLATIN
     Dosage: 0.2 MG, UNK
     Dates: start: 20130820
  3. CARBOPLATIN. [Suspect]
     Active Substance: CARBOPLATIN
     Dosage: 1.7 MG, UNK
  4. PACLITAXEL. [Suspect]
     Active Substance: PACLITAXEL
     Indication: OVARIAN CANCER
     Dosage: UNK, WEEKLY
     Dates: end: 201306
  5. PACLITAXEL. [Suspect]
     Active Substance: PACLITAXEL
     Dosage: 80 MG/M2, AT 8 PM IN EVENING
     Dates: start: 20130820
  6. OLAPARIB [Suspect]
     Active Substance: OLAPARIB
     Indication: OVARIAN CANCER
     Dosage: UNK
  7. CARBOPLATIN. [Suspect]
     Active Substance: CARBOPLATIN
     Dosage: 17.2 MG, UNK

REACTIONS (7)
  - Pallor [Unknown]
  - Chills [Unknown]
  - Hypotension [Unknown]
  - Haemolytic anaemia [Unknown]
  - Chromaturia [Unknown]
  - Myelodysplastic syndrome transformation [Unknown]
  - Haematuria [Unknown]

NARRATIVE: CASE EVENT DATE: 2013
